FAERS Safety Report 7422822-5 (Version None)
Quarter: 2011Q2

REPORT INFORMATION
  Report Type: 
  Country: None (occurrence: None)
  Receive Date: 20110419
  Receipt Date: 20090622
  Transmission Date: 20111010
  Serious: Yes (Hospitalization, Other)
  Sender: FDA-Public Use
  Company Number: US-BAYER-2011-005586

PATIENT
  Age: 59 Year
  Sex: Female
  Weight: 129.71 kg

DRUGS (23)
  1. PLAVIX [Concomitant]
     Dosage: 75 MG, QD
  2. INSULIN [Concomitant]
     Dosage: 10 U, UNK
     Route: 042
     Dates: start: 20050324
  3. NEURONTIN [Concomitant]
     Dosage: 4 MG, BID
     Route: 048
     Dates: start: 20020101
  4. ZYRTEC [Concomitant]
     Dosage: 10 MG, QD
     Route: 048
     Dates: start: 20030101
  5. DOPAMINE HCL [Concomitant]
     Indication: WEANING FAILURE
     Dosage: 5 MCG/KG , Q1MIN
     Route: 042
     Dates: start: 20050325
  6. TRASYLOL [Suspect]
     Dosage: 200 ML, ONCE
     Route: 042
     Dates: start: 20050324, end: 20050324
  7. GLUCOVANCE [Concomitant]
     Dosage: 5/500 UNK,
     Route: 048
     Dates: start: 19980101
  8. LOTREL [Concomitant]
     Dosage: 10/20 UNK, UNK
     Route: 048
  9. STARLIX [Concomitant]
     Dosage: 120 MG, QD
     Route: 048
     Dates: start: 20020101
  10. PROTAMINE SULFATE [Concomitant]
     Dosage: 400 MG, UNK
     Route: 042
     Dates: start: 20050324, end: 20050324
  11. TRASYLOL [Suspect]
     Indication: CORONARY ARTERY BYPASS
     Dosage: 1 ML, ONCE
     Route: 042
     Dates: start: 20050324, end: 20050324
  12. PREVACID [Concomitant]
     Dosage: 30 MG, QD
     Route: 048
     Dates: start: 20020101
  13. LASIX [Concomitant]
     Dosage: 40 MG, UNK
     Dates: start: 20050324, end: 20050324
  14. NORVASC [Concomitant]
     Dosage: UNK
     Route: 048
     Dates: start: 20020101
  15. TRASYLOL [Suspect]
     Dosage: 50 ML, Q1HR
     Route: 042
     Dates: start: 20050324, end: 20050324
  16. LIPITOR [Concomitant]
     Dosage: 40 MG, QD
     Route: 048
  17. DARVOCET [Concomitant]
     Dosage: 1 UNK, PRN
     Route: 048
     Dates: start: 20000101
  18. LORAZEPAM [Concomitant]
     Dosage: 2 MG, UNK
     Route: 048
     Dates: start: 20030101
  19. VERSED [Concomitant]
     Dosage: 10 MG, UNK
     Route: 042
     Dates: start: 20050324
  20. CONTRAST MEDIA [Concomitant]
     Dosage: UNK
     Dates: start: 20050101
  21. AVANDIA [Concomitant]
     Dosage: 4 MG, BID
     Route: 048
     Dates: start: 20020101
  22. LIDOCAINE [Concomitant]
     Dosage: 2 MG, Q1MIN
     Route: 042
     Dates: start: 20050324, end: 20050324
  23. HEPARIN [Concomitant]
     Dosage: 49 U, UNK
     Route: 042
     Dates: start: 20050324, end: 20050324

REACTIONS (12)
  - UNEVALUABLE EVENT [None]
  - RENAL INJURY [None]
  - STRESS [None]
  - PAIN [None]
  - MULTI-ORGAN FAILURE [None]
  - RENAL FAILURE [None]
  - FEAR [None]
  - RENAL IMPAIRMENT [None]
  - ANXIETY [None]
  - INJURY [None]
  - MYOCARDIAL INFARCTION [None]
  - EMOTIONAL DISTRESS [None]
